FAERS Safety Report 11785171 (Version 2)
Quarter: 2020Q4

REPORT INFORMATION
  Report Type: Spontaneous
  Country: US (occurrence: US)
  Receive Date: 20151130
  Receipt Date: 20201223
  Transmission Date: 20210113
  Serious: No
  Sender: FDA-Public Use
  Company Number: US-PFIZER INC-2015345248

PATIENT
  Age: 53 Year
  Sex: Female
  Weight: 55.79 kg

DRUGS (3)
  1. DISOPYRAMIDE PHOSPHATE. [Suspect]
     Active Substance: DISOPYRAMIDE PHOSPHATE
     Dosage: 900 MG, UNK (6-150MG CAPSULES: 3 CAPSULES IN THE MORNING AND 3 CAPSULES AT NIGHT)
     Dates: start: 1995
  2. DISOPYRAMIDE PHOSPHATE. [Suspect]
     Active Substance: DISOPYRAMIDE PHOSPHATE
     Indication: CARDIAC DISORDER
     Dosage: 150 MG, UNK (2 CAPSULES)
  3. NORPACE CR [Concomitant]
     Active Substance: DISOPYRAMIDE PHOSPHATE
     Dosage: 600 MG, DAILY (2 CAPSULES AM, 2 CAPSULES PM)
     Dates: start: 1981

REACTIONS (2)
  - Product dispensing error [Unknown]
  - Chest pain [Recovered/Resolved]

NARRATIVE: CASE EVENT DATE: 1995
